FAERS Safety Report 9778953 (Version 1)
Quarter: 2013Q4

REPORT INFORMATION
  Report Type: Spontaneous
  Country: FR (occurrence: FR)
  Receive Date: 20131223
  Receipt Date: 20131223
  Transmission Date: 20140711
  Serious: Yes (Hospitalization)
  Sender: FDA-Public Use
  Company Number: FR-009507513-1312FRA007017

PATIENT
  Age: 74 Year
  Sex: Female

DRUGS (1)
  1. TEMODAL [Suspect]
     Dosage: 120 MG, QD
     Route: 048
     Dates: start: 20131025, end: 20131116

REACTIONS (1)
  - Aplasia [Recovering/Resolving]
